FAERS Safety Report 12385576 (Version 7)
Quarter: 2018Q2

REPORT INFORMATION
  Report Type: Spontaneous
  Country: US (occurrence: US)
  Receive Date: 20160519
  Receipt Date: 20180607
  Transmission Date: 20180711
  Serious: Yes (Death, Hospitalization, Other)
  Sender: FDA-Public Use
  Company Number: US-GLAXOSMITHKLINE-US2016063142

PATIENT
  Age: 79 Year
  Sex: Female

DRUGS (9)
  1. ADVAIR DISKUS [Suspect]
     Active Substance: FLUTICASONE PROPIONATE\SALMETEROL XINAFOATE
     Indication: DYSPNOEA
     Dosage: 1 PUFF(S), BID
     Route: 055
  2. DALIRESP [Suspect]
     Active Substance: ROFLUMILAST
     Indication: PRODUCT USED FOR UNKNOWN INDICATION
  3. PREDNISONE. [Concomitant]
     Active Substance: PREDNISONE
  4. VENTOLIN HFA [Suspect]
     Active Substance: ALBUTEROL SULFATE
     Indication: DYSPNOEA
     Dosage: 2-3 PUFFS PRN
     Route: 055
  5. CARVEDILOL. [Concomitant]
     Active Substance: CARVEDILOL
  6. GABAPENTIN. [Concomitant]
     Active Substance: GABAPENTIN
  7. LANOXIN [Concomitant]
     Active Substance: DIGOXIN
  8. SPIRIVA [Concomitant]
     Active Substance: TIOTROPIUM BROMIDE MONOHYDRATE
  9. ADVAIR HFA [Suspect]
     Active Substance: FLUTICASONE PROPIONATE\SALMETEROL XINAFOATE
     Indication: CHRONIC OBSTRUCTIVE PULMONARY DISEASE

REACTIONS (9)
  - Malaise [Unknown]
  - Chest injury [Unknown]
  - Dyspnoea [Unknown]
  - Oral candidiasis [Unknown]
  - Incorrect dose administered [Unknown]
  - Chronic obstructive pulmonary disease [Fatal]
  - Pain [Unknown]
  - Drug ineffective [Unknown]
  - Product quality issue [Unknown]

NARRATIVE: CASE EVENT DATE: 2014
